FAERS Safety Report 9808984 (Version 3)
Quarter: 2014Q1

REPORT INFORMATION
  Report Type: Report from Study
  Country: US (occurrence: US)
  Receive Date: 20140110
  Receipt Date: 20140210
  Transmission Date: 20141002
  Serious: Yes (Other)
  Sender: FDA-Public Use
  Company Number: PHEH2014US000640

PATIENT
  Sex: Male

DRUGS (2)
  1. NEORAL [Suspect]
     Dosage: 25 MG, BID
     Route: 048
  2. MYFORTIC [Suspect]

REACTIONS (2)
  - Nephropathy [Unknown]
  - Renal failure [Unknown]
